FAERS Safety Report 9148082 (Version 2)
Quarter: 2013Q2

REPORT INFORMATION
  Report Type: Spontaneous
  Country: US (occurrence: US)
  Receive Date: 20130308
  Receipt Date: 20130401
  Transmission Date: 20140414
  Serious: Yes (Hospitalization)
  Sender: FDA-Public Use
  Company Number: US-BIOGENIDEC-2013BI020688

PATIENT
  Age: 63 Year
  Sex: Male

DRUGS (1)
  1. TYSABRI [Suspect]
     Indication: MULTIPLE SCLEROSIS
     Route: 042
     Dates: start: 20100302

REACTIONS (4)
  - Urinary tract infection [Recovered/Resolved]
  - Neurogenic bladder [Not Recovered/Not Resolved]
  - Urinary tract infection pseudomonal [Recovered/Resolved]
  - Clostridium difficile colitis [Recovered/Resolved]
